FAERS Safety Report 7320889-6 (Version None)
Quarter: 2011Q1

REPORT INFORMATION
  Report Type: 
  Country: None (occurrence: None)
  Receive Date: 20110121
  Receipt Date: 20100511
  Transmission Date: 20110831
  Serious: Yes (Other)
  Sender: FDA-Public Use
  Company Number: SOLV00210003103

PATIENT
  Age: 57 Year
  Sex: Female

DRUGS (3)
  1. PROMETRIUM [Suspect]
     Indication: OESTROGEN REPLACEMENT THERAPY
     Dosage: 200 MILLIGRAM(S) DAILY FOR THE FIRST 12 DAYS OF EACH MONTH AT BEDTIME
     Dates: start: 20080301, end: 20091216
  2. PLACEBO [Suspect]
     Indication: OESTROGEN REPLACEMENT THERAPY
     Dosage: DAILY TRANSCUTANEOUS
     Dates: start: 20080301, end: 20091216
  3. PREMARIN WITH CONJUGATED ESTROGENS CYCLE [Suspect]
     Indication: OESTROGEN REPLACEMENT THERAPY
     Dosage: 0.45 MILLIGRAM(S) DAILY, .45 MILLIGRAM(S)
     Dates: start: 20080301, end: 20091216

REACTIONS (1)
  - ENDOMETRIAL HYPERPLASIA [None]
